FAERS Safety Report 7492869-1 (Version None)
Quarter: 2011Q2

REPORT INFORMATION
  Report Type: 
  Country: None (occurrence: None)
  Receive Date: 20110520
  Receipt Date: 20110513
  Transmission Date: 20111010
  Serious: Yes (Death, Hospitalization)
  Sender: FDA-Public Use
  Company Number: US-BIOGENIDEC-2010BI044886

PATIENT
  Age: 57 Year
  Sex: Female

DRUGS (14)
  1. SIMVASTATIN [Concomitant]
  2. MS CONTIN [Concomitant]
     Indication: PAIN
     Dates: start: 20070910
  3. FUROSEMIDE [Concomitant]
  4. LASIX [Concomitant]
  5. TYSABRI [Suspect]
     Indication: MULTIPLE SCLEROSIS
     Route: 042
     Dates: start: 20050216, end: 20050216
  6. TYSABRI [Suspect]
     Route: 042
     Dates: start: 20070217, end: 20101206
  7. APIDRA [Concomitant]
  8. METFORMIN HCL [Concomitant]
  9. SINGULAIR [Concomitant]
  10. MORPHINE [Concomitant]
     Indication: PAIN
     Dates: start: 20100424
  11. ATENOLOL [Concomitant]
  12. LANTUS [Concomitant]
  13. GABAPENTIN [Concomitant]
  14. VITAMIN B COMPLEX CAP [Concomitant]

REACTIONS (5)
  - HEADACHE [None]
  - BRONCHOPNEUMONIA [None]
  - FATIGUE [None]
  - SLEEP APNOEA SYNDROME [None]
  - CORONARY ARTERY DISEASE [None]
